FAERS Safety Report 23099870 (Version 2)
Quarter: 2023Q4

REPORT INFORMATION
  Report Type: Spontaneous
  Country: US (occurrence: US)
  Receive Date: 20231024
  Receipt Date: 20231121
  Transmission Date: 20240110
  Serious: No
  Sender: FDA-Public Use
  Company Number: US-RISINGPHARMA-US-2023RISSPO00152

PATIENT
  Age: 51 Year
  Sex: Female

DRUGS (1)
  1. CROMOLYN SODIUM [Suspect]
     Active Substance: CROMOLYN SODIUM
     Indication: Mastocytosis
     Route: 065

REACTIONS (7)
  - Weight decreased [Unknown]
  - Abdominal pain upper [Unknown]
  - Illness [Unknown]
  - Flushing [Unknown]
  - Nausea [Unknown]
  - Malaise [Unknown]
  - Product dose omission issue [Unknown]
